FAERS Safety Report 12113684 (Version 5)
Quarter: 2016Q2

REPORT INFORMATION
  Report Type: Spontaneous
  Country: US (occurrence: US)
  Receive Date: 20160225
  Receipt Date: 20160615
  Transmission Date: 20160815
  Serious: Yes (Other)
  Sender: FDA-Public Use
  Company Number: PHEH2016US003774

PATIENT
  Age: 10 Year
  Sex: Male
  Weight: 30.85 kg

DRUGS (5)
  1. FOCALIN [Suspect]
     Active Substance: DEXMETHYLPHENIDATE HYDROCHLORIDE
     Dosage: INCREASED TO THE DOUBLE DOSE (UNKNOWN DOSE) OF FOCALIN
     Route: 065
     Dates: start: 2014
  2. FOCALIN XR [Suspect]
     Active Substance: DEXMETHYLPHENIDATE HYDROCHLORIDE
     Indication: ATTENTION DEFICIT/HYPERACTIVITY DISORDER
     Dosage: 15 MG, QD
     Route: 048
     Dates: start: 20120326
  3. FOCALIN [Suspect]
     Active Substance: DEXMETHYLPHENIDATE HYDROCHLORIDE
     Indication: PRODUCT USED FOR UNKNOWN INDICATION
     Dosage: 10 MG, UNK
     Route: 065
     Dates: start: 2012
  4. CYPROHEPTADINE. [Suspect]
     Active Substance: CYPROHEPTADINE
     Indication: DECREASED APPETITE
     Dosage: 2 MG, BID
     Route: 048
     Dates: start: 20140412
  5. FISH OIL [Concomitant]
     Active Substance: FISH OIL
     Indication: PRODUCT USED FOR UNKNOWN INDICATION
     Route: 065

REACTIONS (4)
  - Dyskinesia [Unknown]
  - Epilepsy [Unknown]
  - Partial seizures with secondary generalisation [Recovering/Resolving]
  - Seizure [Recovered/Resolved]

NARRATIVE: CASE EVENT DATE: 201506
